FAERS Safety Report 10365205 (Version 1)
Quarter: 2014Q3

REPORT INFORMATION
  Report Type: Report from Study
  Country: DE (occurrence: DE)
  Receive Date: 20140806
  Receipt Date: 20140806
  Transmission Date: 20150326
  Serious: Yes (Hospitalization)
  Sender: FDA-Public Use
  Company Number: PHHY2014DE095196

PATIENT
  Sex: Female
  Weight: 71 kg

DRUGS (5)
  1. BERODUAL N [Concomitant]
     Active Substance: FENOTEROL HYDROBROMIDE\IPRATROPIUM BROMIDE
     Dosage: 1 DF, PRN
     Dates: start: 20010509
  2. NO TREATMENT RECEIVED [Suspect]
     Active Substance: UNSPECIFIED INGREDIENT
  3. ENALAPRIL-CT [Concomitant]
  4. PREDNISOLON GALEN [Concomitant]
     Dates: start: 20031126
  5. ULTIBRO BREEZHALER [Suspect]
     Active Substance: GLYCOPYRRONIUM\INDACATEROL
     Indication: CHRONIC OBSTRUCTIVE PULMONARY DISEASE
     Dosage: 1 DF, QD
     Route: 055
     Dates: start: 20140423

REACTIONS (1)
  - Humerus fracture [Recovering/Resolving]

NARRATIVE: CASE EVENT DATE: 20140719
